FAERS Safety Report 6210623-5 (Version None)
Quarter: 2009Q2

REPORT INFORMATION
  Report Type: 
  Country: None (occurrence: None)
  Receive Date: 20090529
  Receipt Date: 20090529
  Transmission Date: 20091009
  Serious: Yes (Hospitalization)
  Sender: FDA-Public Use
  Company Number: None

PATIENT
  Sex: Male
  Weight: 75.1 kg

DRUGS (2)
  1. ZYVOX [Suspect]
     Indication: PNEUMONIA
     Dosage: 600MG Q12H IV BOLUS
     Route: 040
     Dates: start: 20090221, end: 20090304
  2. ZYVOX [Suspect]
     Indication: STAPHYLOCOCCAL INFECTION
     Dosage: 600MG Q12H IV BOLUS
     Route: 040
     Dates: start: 20090221, end: 20090304

REACTIONS (13)
  - AZOTAEMIA [None]
  - DISSEMINATED INTRAVASCULAR COAGULATION [None]
  - GASTROINTESTINAL HAEMORRHAGE [None]
  - HEPARIN-INDUCED THROMBOCYTOPENIA [None]
  - HYPERCATABOLISM [None]
  - HYPOTENSION [None]
  - IDIOPATHIC THROMBOCYTOPENIC PURPURA [None]
  - RENAL INJURY [None]
  - RENAL ISCHAEMIA [None]
  - RENAL TUBULAR NECROSIS [None]
  - SEPSIS SYNDROME [None]
  - THROMBOCYTOPENIA [None]
  - TUBULOINTERSTITIAL NEPHRITIS [None]
